FAERS Safety Report 11119566 (Version 1)
Quarter: 2015Q2

REPORT INFORMATION
  Report Type: Spontaneous
  Country: US (occurrence: US)
  Receive Date: 20150518
  Receipt Date: 20150518
  Transmission Date: 20150821
  Serious: No
  Sender: FDA-Public Use
  Company Number: US-B.I. PHARMACEUTICALS,INC./RIDGEFIELD-2015-BI-24504BP

PATIENT
  Sex: Female
  Weight: 44 kg

DRUGS (3)
  1. TAMBOCOR [Concomitant]
     Active Substance: FLECAINIDE ACETATE
     Indication: ATRIAL FIBRILLATION
     Dosage: 225 MG
     Route: 048
  2. CLONAZEPAM. [Concomitant]
     Active Substance: CLONAZEPAM
     Indication: DEPRESSION
     Dosage: 0.5 MG
     Route: 048
  3. PRADAXA [Suspect]
     Active Substance: DABIGATRAN ETEXILATE MESYLATE
     Indication: ATRIAL FIBRILLATION
     Dosage: 300 MG
     Route: 048
     Dates: start: 2012, end: 20150503

REACTIONS (15)
  - Dyspnoea [Not Recovered/Not Resolved]
  - Abdominal pain upper [Not Recovered/Not Resolved]
  - Abnormal loss of weight [Not Recovered/Not Resolved]
  - Burning sensation [Not Recovered/Not Resolved]
  - Mouth swelling [Not Recovered/Not Resolved]
  - Ageusia [Not Recovered/Not Resolved]
  - Dehydration [Not Recovered/Not Resolved]
  - Eye irritation [Not Recovered/Not Resolved]
  - Decreased appetite [Not Recovered/Not Resolved]
  - Pain [Not Recovered/Not Resolved]
  - Nausea [Not Recovered/Not Resolved]
  - Dizziness [Not Recovered/Not Resolved]
  - Lip swelling [Not Recovered/Not Resolved]
  - Swollen tongue [Not Recovered/Not Resolved]
  - Swelling face [Not Recovered/Not Resolved]

NARRATIVE: CASE EVENT DATE: 2012
